FAERS Safety Report 23572375 (Version 1)
Quarter: 2024Q1

REPORT INFORMATION
  Report Type: Spontaneous
  Country: US (occurrence: US)
  Receive Date: 20240227
  Receipt Date: 20240227
  Transmission Date: 20240410
  Serious: No
  Sender: FDA-Public Use
  Company Number: US-AVADEL CNS PHARMACEUTICALS, LLC-2024AVA00067

PATIENT
  Age: 42 Year
  Sex: Male
  Weight: 33.56 kg

DRUGS (6)
  1. LUMRYZ [Suspect]
     Active Substance: SODIUM OXYBATE
     Indication: Narcolepsy
     Dosage: 6 G, ONCE NIGHTLY AT BEDTIME FOR 1 WEEK
     Route: 048
     Dates: start: 202401, end: 202401
  2. LUMRYZ [Suspect]
     Active Substance: SODIUM OXYBATE
     Indication: Narcolepsy
     Dosage: 7.5 G, ONCE NIGHTLY
     Route: 048
     Dates: start: 202401
  3. WAKIX [Suspect]
     Active Substance: PITOLISANT HYDROCHLORIDE
  4. VITAMINS [Concomitant]
     Active Substance: VITAMINS
  5. TYLENOL [Concomitant]
     Active Substance: ACETAMINOPHEN
  6. XYWAV [Concomitant]
     Active Substance: CALCIUM OXYBATE\MAGNESIUM OXYBATE\POTASSIUM OXYBATE\SODIUM OXYBATE
     Indication: Narcolepsy

REACTIONS (3)
  - Insomnia [Not Recovered/Not Resolved]
  - Fatigue [Unknown]
  - Product dose omission issue [Not Recovered/Not Resolved]

NARRATIVE: CASE EVENT DATE: 20240101
